FAERS Safety Report 4476707-7 (Version None)
Quarter: 2004Q4

REPORT INFORMATION
  Report Type: 
  Country: None (occurrence: None)
  Receive Date: 20041013
  Receipt Date: 20041001
  Transmission Date: 20050328
  Serious: Yes (Hospitalization, Other)
  Sender: FDA-Public Use
  Company Number: KII-2004-0013535

PATIENT
  Age: 41 Year
  Sex: Female

DRUGS (12)
  1. OXYCONTIN [Suspect]
     Dosage: ORAL
     Route: 048
  2. CHLORZOXAZONE [Suspect]
     Dosage: ORAL
     Route: 048
  3. ACETAMINOPHEN AND HYDROCODONE BITARTRATE [Suspect]
     Dosage: ORAL
     Route: 048
  4. TRANXENE [Suspect]
     Dosage: ORAL
     Route: 048
  5. TRAZODONE (TRAZODONE) [Suspect]
     Dosage: ORAL
     Route: 048
  6. SSRI () [Suspect]
     Dosage: ORAL
     Route: 048
  7. BUSPIRONE HCL [Suspect]
     Dosage: ORAL
     Route: 048
  8. ANTIEPILEPTICS () [Suspect]
     Dosage: ORAL
     Route: 048
  9. SKELAXIN [Suspect]
     Dosage: ORAL
     Route: 048
  10. BARBITURATES() [Suspect]
     Dosage: ORAL
     Route: 048
  11. ASPIRIN [Suspect]
     Dosage: ORAL
     Route: 048
  12. OTHER ANALGESICS AND ANTIPYRETICS() [Suspect]
     Dosage: ORAL
     Route: 048

REACTIONS (16)
  - ALANINE AMINOTRANSFERASE INCREASED [None]
  - AREFLEXIA [None]
  - BLOOD BICARBONATE DECREASED [None]
  - BLOOD PH DECREASED [None]
  - BLOOD PHOSPHORUS DECREASED [None]
  - BLOOD POTASSIUM DECREASED [None]
  - BLOOD PRESSURE DECREASED [None]
  - BODY TEMPERATURE DECREASED [None]
  - COMA [None]
  - COUGH [None]
  - HEART RATE INCREASED [None]
  - MULTIPLE DRUG OVERDOSE [None]
  - OXYGEN SATURATION DECREASED [None]
  - PCO2 INCREASED [None]
  - WHEEZING [None]
  - WHITE BLOOD CELL COUNT INCREASED [None]
